FAERS Safety Report 8061457-0 (Version None)
Quarter: 2012Q1

REPORT INFORMATION
  Report Type: 
  Country: None (occurrence: None)
  Receive Date: 20120120
  Receipt Date: 20111116
  Transmission Date: 20120608
  Serious: No
  Sender: FDA-Public Use
  Company Number: US-ALLERGAN-1114856US

PATIENT
  Sex: Female

DRUGS (6)
  1. CELLUVISC [Concomitant]
     Indication: DRY EYE
     Dosage: UNK
     Route: 047
  2. SYNTHROID [Concomitant]
     Indication: HYPOTHYROIDISM
     Dosage: UNK
     Route: 048
  3. RESTASIS [Suspect]
     Indication: DRY EYE
     Dosage: 2 GTT, BID
     Route: 047
     Dates: start: 20110901
  4. CLARITIN                           /00917501/ [Concomitant]
     Indication: SEASONAL ALLERGY
     Dosage: UNK
     Route: 048
  5. REFRESH PLUS [Concomitant]
     Indication: DRY EYE
     Dosage: UNK
     Route: 047
  6. CELLUVISC [Concomitant]
     Indication: FOREIGN BODY SENSATION IN EYES

REACTIONS (1)
  - EYE IRRITATION [None]
